FAERS Safety Report 5958972-X (Version None)
Quarter: 2008Q4

REPORT INFORMATION
  Report Type: 
  Country: None (occurrence: None)
  Receive Date: 20081117
  Receipt Date: 20081031
  Transmission Date: 20090506
  Serious: Yes (Hospitalization)
  Sender: FDA-Public Use
  Company Number: 081031-0000857

PATIENT
  Age: 51 Year
  Sex: Female

DRUGS (5)
  1. INDOCIN [Suspect]
     Indication: STILL'S DISEASE ADULT ONSET
     Dosage: 75 MG; QD;
  2. METHOTREXATE [Suspect]
     Indication: STILL'S DISEASE ADULT ONSET
     Dosage: 6 MG; QW;, 15 MG; QW;
  3. METHYLPREDNISOLONE 16MG TAB [Suspect]
     Indication: STILL'S DISEASE ADULT ONSET
     Dosage: 0.5 GM; QD; IV
     Route: 042
  4. BETAMETHASONE [Suspect]
     Indication: STILL'S DISEASE ADULT ONSET
     Dosage: 5 MG; QD; PO
     Route: 048
  5. PREDNISOLONE [Concomitant]

REACTIONS (3)
  - HEPATIC FAILURE [None]
  - HEPATIC NECROSIS [None]
  - HEPATOTOXICITY [None]
